FAERS Safety Report 4268283-9 (Version None)
Quarter: 2004Q1

REPORT INFORMATION
  Report Type: 
  Country: None (occurrence: None)
  Receive Date: 20040108
  Receipt Date: 20031229
  Transmission Date: 20041129
  Serious: Yes (Other)
  Sender: FDA-Public Use
  Company Number: FR-JNJFOC-2003-1105080

PATIENT
  Age: 52 Year
  Sex: Female
  Weight: 55 kg

DRUGS (8)
  1. REMICADE [Suspect]
     Indication: REITER'S SYNDROME
     Dosage: 200 MG, 1 IN 1 DAY, INTRAVENOUS
     Route: 042
     Dates: start: 20030708, end: 20030708
  2. REMICADE [Suspect]
     Indication: REITER'S SYNDROME
     Dosage: 200 MG, 1 IN 1 DAY, INTRAVENOUS
     Route: 042
     Dates: start: 20030723, end: 20030723
  3. REMICADE [Suspect]
     Indication: REITER'S SYNDROME
     Dosage: 200 MG, 1 IN 1 DAY, INTRAVENOUS
     Route: 042
     Dates: start: 20030820, end: 20030820
  4. REMICADE [Suspect]
     Indication: REITER'S SYNDROME
     Dosage: 200 MG, 1 IN 1 DAY, INTRAVENOUS
     Route: 042
     Dates: start: 20031015, end: 20031015
  5. PREDNISONE [Concomitant]
  6. OROCAL D3 (LEKOVIT CA [Concomitant]
  7. METHOTREXATE [Concomitant]
  8. FOLIC ACID [Concomitant]

REACTIONS (2)
  - FURUNCLE [None]
  - MYALGIA [None]
